FAERS Safety Report 8139875-1 (Version None)
Quarter: 2012Q1

REPORT INFORMATION
  Report Type: 
  Country: None (occurrence: None)
  Receive Date: 20120215
  Receipt Date: 20120209
  Transmission Date: 20120608
  Serious: Yes (Death)
  Sender: FDA-Public Use
  Company Number: US-CELGENEUS-163-20785-12021175

PATIENT
  Sex: Male

DRUGS (4)
  1. THALOMID [Suspect]
     Dosage: 100 MILLIGRAM
     Route: 048
     Dates: start: 20090901
  2. THALOMID [Suspect]
     Indication: MULTIPLE MYELOMA
     Dosage: 50 MILLIGRAM
     Route: 048
     Dates: start: 20081201
  3. THALOMID [Suspect]
     Dosage: 200 MILLIGRAM
     Route: 048
     Dates: start: 20090701
  4. THALOMID [Suspect]
     Dosage: 50 MILLIGRAM
     Route: 048
     Dates: start: 20110701

REACTIONS (1)
  - DISEASE COMPLICATION [None]
